FAERS Safety Report 9215551 (Version 1)
Quarter: 2013Q2

REPORT INFORMATION
  Report Type: Spontaneous
  Country: US (occurrence: US)
  Receive Date: 20130407
  Receipt Date: 20130407
  Transmission Date: 20140414
  Serious: Yes (Hospitalization, Other)
  Sender: FDA-Public Use
  Company Number: US-AMGEN-USASP2013022614

PATIENT
  Sex: Female

DRUGS (1)
  1. ENBREL [Suspect]
     Indication: RHEUMATOID ARTHRITIS
     Dosage: UNK

REACTIONS (8)
  - Hospitalisation [Unknown]
  - Surgery [Unknown]
  - Wrist surgery [Unknown]
  - Jaw disorder [Unknown]
  - Facial nerve disorder [Unknown]
  - Tooth discolouration [Unknown]
  - Tooth disorder [Unknown]
  - Joint range of motion decreased [Not Recovered/Not Resolved]
